FAERS Safety Report 6700176-7 (Version None)
Quarter: 2010Q2

REPORT INFORMATION
  Report Type: 
  Country: None (occurrence: None)
  Receive Date: 20100428
  Receipt Date: 20100419
  Transmission Date: 20101027
  Serious: Yes (Other)
  Sender: FDA-Public Use
  Company Number: US-ABBOTT-10P-163-0639702-00

PATIENT
  Sex: Female
  Weight: 74.456 kg

DRUGS (13)
  1. HUMIRA [Suspect]
     Indication: RHEUMATOID ARTHRITIS
     Dates: start: 20080601
  2. HUMIRA [Suspect]
     Dates: start: 20100309
  3. LYRICA [Concomitant]
     Indication: FIBROMYALGIA
     Dates: start: 20080101
  4. CYMBALTA [Concomitant]
     Indication: FIBROMYALGIA
     Dates: start: 20080101
  5. LUNESTA [Concomitant]
     Indication: INSOMNIA
     Dates: start: 20090101
  6. ULTRAM ER [Concomitant]
     Indication: FIBROMYALGIA
     Dates: start: 20090101
  7. ULTRAM ER [Concomitant]
     Indication: ARTHRALGIA
  8. VITAMIN B-12 [Concomitant]
     Indication: NERVOUS SYSTEM DISORDER
  9. VITAMIN D [Concomitant]
     Indication: VITAMIN D DECREASED
  10. CRANBERRY [Concomitant]
     Indication: NEPHROLITHIASIS
  11. CRANBERRY [Concomitant]
     Indication: URINARY TRACT INFECTION
  12. METHOTREXATE [Concomitant]
     Indication: RHEUMATOID ARTHRITIS
     Dates: start: 20090101
  13. ALLEGRA [Concomitant]
     Indication: SEASONAL ALLERGY
     Dates: start: 20090101

REACTIONS (2)
  - BIOPSY BREAST ABNORMAL [None]
  - PRECANCEROUS CELLS PRESENT [None]
